FAERS Safety Report 9720640 (Version 2)
Quarter: 2013Q4

REPORT INFORMATION
  Report Type: Spontaneous
  Country: GR (occurrence: GR)
  Receive Date: 20131129
  Receipt Date: 20131129
  Transmission Date: 20140711
  Serious: Yes (Other)
  Sender: FDA-Public Use
  Company Number: PHHY2013GR101475

PATIENT
  Age: 81 Year
  Sex: Female

DRUGS (2)
  1. SANDIMMUN NEORAL / OL [Suspect]
     Indication: PSORIASIS
  2. ANTIHYPERTENSIVE DRUGS [Concomitant]

REACTIONS (3)
  - Psoriasis [Not Recovered/Not Resolved]
  - Asthenia [Not Recovered/Not Resolved]
  - Oedema peripheral [Recovering/Resolving]
